FAERS Safety Report 15435656 (Version 2)
Quarter: 2019Q4

REPORT INFORMATION
  Report Type: Report from Study
  Country: IT (occurrence: IT)
  Receive Date: 20180927
  Receipt Date: 20191029
  Transmission Date: 20200122
  Serious: Yes (Other)
  Sender: FDA-Public Use
  Company Number: PHHY2017IT193884

PATIENT
  Age: 57 Year
  Sex: Female

DRUGS (2)
  1. COSENTYX [Suspect]
     Active Substance: SECUKINUMAB
     Dosage: 300 MG, QMO
     Route: 065
  2. COSENTYX [Suspect]
     Active Substance: SECUKINUMAB
     Indication: PSORIASIS
     Dosage: 300 MG, UNK
     Route: 065
     Dates: start: 20170711

REACTIONS (15)
  - Osteoarthritis [Unknown]
  - Therapeutic response unexpected [Recovering/Resolving]
  - Ligament disorder [Unknown]
  - Meniscal degeneration [Unknown]
  - Arthropathy [Unknown]
  - Arthritis [Unknown]
  - Bronchitis [Unknown]
  - Pyrexia [Unknown]
  - Chondropathy [Unknown]
  - Psoriasis [Recovering/Resolving]
  - Nasopharyngitis [Unknown]
  - Psoriatic arthropathy [Unknown]
  - Arthralgia [Unknown]
  - Bone pain [Not Recovered/Not Resolved]
  - Skin plaque [Unknown]

NARRATIVE: CASE EVENT DATE: 20170711
